FAERS Safety Report 5950094-7 (Version None)
Quarter: 2008Q4

REPORT INFORMATION
  Report Type: 
  Country: None (occurrence: None)
  Receive Date: 20081112
  Receipt Date: 20081104
  Transmission Date: 20090506
  Serious: Yes (Other)
  Sender: FDA-Public Use
  Company Number: US-ELI_LILLY_AND_COMPANY-US200808004886

PATIENT
  Sex: Male
  Weight: 77.098 kg

DRUGS (14)
  1. GEMZAR [Suspect]
     Indication: NON-SMALL CELL LUNG CANCER
     Dosage: 1 GM/M2, DAY1,DAY8 EVERY 3 WEEKS
     Dates: start: 20080717, end: 20080811
  2. AVASTIN [Concomitant]
     Indication: LUNG NEOPLASM MALIGNANT
     Dosage: 15 MG/KG, EVERY 3 WEEKS
     Dates: start: 20080717
  3. CARBOPLATIN [Concomitant]
     Indication: LUNG NEOPLASM MALIGNANT
     Dosage: OTHER;DAY 1; AUC=5
     Dates: start: 20080717
  4. OTHER AGENTS FOR LOCAL ORAL TREATMENT [Concomitant]
  5. NEXIUM [Concomitant]
     Dosage: UNK, AS NEEDED
  6. REGLAN [Concomitant]
     Dosage: 10 D/F, 4/D
  7. PREVACID [Concomitant]
     Route: 048
  8. LOPRESSOR [Concomitant]
  9. THORAZINE [Concomitant]
     Indication: HICCUPS
  10. MEGACE [Concomitant]
     Indication: DECREASED APPETITE
  11. FAMVIR [Concomitant]
  12. TYLENOL W/ CODEINE [Concomitant]
  13. DURAGESIC-100 [Concomitant]
  14. ATIVAN [Concomitant]

REACTIONS (6)
  - DUODENITIS [None]
  - DYSPHAGIA [None]
  - HIATUS HERNIA [None]
  - ODYNOPHAGIA [None]
  - OESOPHAGEAL ULCER [None]
  - WEIGHT DECREASED [None]
